FAERS Safety Report 8903183 (Version 1)
Quarter: 2012Q4

REPORT INFORMATION
  Report Type: 
  Country: US (occurrence: US)
  Receive Date: 20121112
  Receipt Date: 20121112
  Transmission Date: 20130627
  Serious: Yes (Hospitalization)
  Sender: FDA-Public Use
  Company Number: US-BAYER-2012-116370

PATIENT
  Age: 20 Year
  Sex: Female
  Weight: 78.01 kg

DRUGS (7)
  1. YAZ [Suspect]
  2. YASMIN [Suspect]
  3. ADDERALL [Concomitant]
     Dosage: 30 mg, daily
     Dates: start: 20090621
  4. ELAVIL [Concomitant]
     Dosage: 10 mg, HS
     Dates: start: 20090621
  5. ZITHROMAX [Concomitant]
     Indication: MULTILOBAR PNEUMONIA
  6. ROCEPHIN [Concomitant]
     Indication: MULTILOBAR PNEUMONIA
  7. AUGMENTIN [Concomitant]

REACTIONS (1)
  - Deep vein thrombosis [None]
